FAERS Safety Report 6124094-0 (Version None)
Quarter: 2009Q1

REPORT INFORMATION
  Report Type: 
  Country: None (occurrence: None)
  Receive Date: 20090316
  Receipt Date: 20081211
  Transmission Date: 20090719
  Serious: No
  Sender: FDA-Public Use
  Company Number: DSA_32907_2008

PATIENT
  Sex: Female
  Weight: 66.6788 kg

DRUGS (12)
  1. XENAZINE [Suspect]
     Indication: TREMOR
     Dosage: (12.5 TID ORAL), (DF ORAL)
     Route: 048
     Dates: end: 20081227
  2. MIRAPEX [Concomitant]
  3. EMBOLEX [Concomitant]
  4. MICARDIS [Concomitant]
  5. CELEBREX [Concomitant]
  6. FLUOXETINE HCL [Concomitant]
  7. PROTONIX [Concomitant]
  8. CLONAZEPAM [Concomitant]
  9. ASCORBIC ACID [Concomitant]
  10. VITAMINS NOS [Concomitant]
  11. HYDROXYZINE [Concomitant]
  12. ZEGERID [Concomitant]

REACTIONS (3)
  - ANAEMIA [None]
  - BACK PAIN [None]
  - DYSKINESIA [None]
